FAERS Safety Report 5269631-3 (Version None)
Quarter: 2007Q1

REPORT INFORMATION
  Report Type: 
  Country: None (occurrence: None)
  Receive Date: 20070320
  Receipt Date: 20070309
  Transmission Date: 20070707
  Serious: Yes (Other)
  Sender: FDA-Public Use
  Company Number: PHBS2007CH04236

PATIENT
  Age: 59 Year
  Sex: Female

DRUGS (2)
  1. XELODA [Concomitant]
     Indication: BREAST CANCER FEMALE
     Dosage: 2G/DAY
     Dates: start: 20050301
  2. ZOMETA [Suspect]
     Indication: METASTASES TO BONE
     Dosage: 4MG IV/MONTH
     Route: 042
     Dates: start: 20050501, end: 20061201

REACTIONS (1)
  - OSTEONECROSIS [None]
